FAERS Safety Report 8762149 (Version 1)
Quarter: 2012Q4

REPORT INFORMATION
  Report Type: 
  Country: US (occurrence: US)
  Receive Date: 20120830
  Receipt Date: 20120830
  Transmission Date: 20130627
  Serious: Yes (Other)
  Sender: FDA-Public Use
  Company Number: US-ELI_LILLY_AND_COMPANY-US201208007944

PATIENT
  Sex: Female

DRUGS (2)
  1. HUMALOG LISPRO [Suspect]
     Indication: DIABETES MELLITUS
     Dosage: UNK, prn
     Dates: start: 2003, end: 201206
  2. GLUCOPHAGE [Concomitant]
     Dosage: UNK
     Dates: end: 20120810

REACTIONS (10)
  - Blood glucose increased [Not Recovered/Not Resolved]
  - Emotional distress [Not Recovered/Not Resolved]
  - Abdominal discomfort [Not Recovered/Not Resolved]
  - Drug dose omission [Not Recovered/Not Resolved]
  - Device malfunction [None]
  - Product quality issue [None]
  - Vision blurred [None]
  - Skin fissures [None]
  - Toothache [None]
  - Weight decreased [None]
